FAERS Safety Report 12727791 (Version 1)
Quarter: 2016Q3

REPORT INFORMATION
  Report Type: Spontaneous
  Country: US (occurrence: US)
  Receive Date: 20160909
  Receipt Date: 20160909
  Transmission Date: 20161109
  Serious: Yes (Other)
  Sender: FDA-Public Use
  Company Number: US-JNJCP-30000344135

PATIENT
  Sex: Female
  Weight: 59 kg

DRUGS (1)
  1. NEUTROGENA ULTRA SHEER SUNSCREEN BROAD SPECTRUM SPF 70 [Suspect]
     Active Substance: AVOBENZONE\HOMOSALATE\OCTISALATE\OCTOCRYLENE\OXYBENZONE
     Indication: PROPHYLAXIS
     Dosage: A GOOD AMOUNT ONCE DAILY
     Route: 061
     Dates: end: 20160625

REACTIONS (7)
  - Expired product administered [Unknown]
  - Pallor [Recovering/Resolving]
  - Adverse event [Unknown]
  - Product expiration date issue [Unknown]
  - Skin cancer [Unknown]
  - Product lot number issue [Unknown]
  - Product quality issue [Unknown]
